FAERS Safety Report 15980671 (Version 1)
Quarter: 2019Q1

REPORT INFORMATION
  Report Type: Report from Study
  Country: IN (occurrence: IN)
  Receive Date: 20190219
  Receipt Date: 20190219
  Transmission Date: 20190418
  Serious: Yes (Death)
  Sender: FDA-Public Use
  Company Number: PHHY2019IN038637

PATIENT
  Age: 57 Year
  Sex: Male

DRUGS (1)
  1. REVOLADE [Suspect]
     Active Substance: ELTROMBOPAG
     Indication: APLASTIC ANAEMIA
     Dosage: 50 MG, QD (STOPPED ON 29 DEC 2018)
     Route: 048
     Dates: start: 20181123

REACTIONS (1)
  - Death [Fatal]

NARRATIVE: CASE EVENT DATE: 20181229
